FAERS Safety Report 6242806-2 (Version None)
Quarter: 2009Q2

REPORT INFORMATION
  Report Type: 
  Country: None (occurrence: None)
  Receive Date: 20090624
  Receipt Date: 20090619
  Transmission Date: 20091009
  Serious: Yes (Other)
  Sender: FDA-Public Use
  Company Number: US-RB-016901-09

PATIENT
  Sex: Female

DRUGS (2)
  1. SUBOXONE [Suspect]
     Dosage: UNKNOWN DOSE
     Route: 060
     Dates: start: 20090605
  2. IMITREX [Concomitant]
     Dosage: UNKNOWN DOSE
     Route: 065

REACTIONS (6)
  - FATIGUE [None]
  - HYPERHIDROSIS [None]
  - INSOMNIA [None]
  - INTENTIONAL SELF-INJURY [None]
  - NIGHTMARE [None]
  - SUICIDAL IDEATION [None]
